FAERS Safety Report 13069472 (Version 1)
Quarter: 2016Q4

REPORT INFORMATION
  Report Type: Spontaneous
  Country: US (occurrence: US)
  Receive Date: 20161228
  Receipt Date: 20161228
  Transmission Date: 20170207
  Serious: Yes (Other)
  Sender: FDA-Public Use
  Company Number: US-AMNEAL PHARMACEUTICALS-2016AMN00671

PATIENT
  Age: 71 Year
  Sex: Female
  Weight: 53.52 kg

DRUGS (2)
  1. HYPERTENSION MEDICINE [Concomitant]
     Indication: HYPERTENSION
  2. SULFAMETHOXAZOLE AND TRIMETHOPRIM [Suspect]
     Active Substance: SULFAMETHOXAZOLE\TRIMETHOPRIM
     Indication: DIVERTICULITIS
     Dosage: (800MG/160MG) 2 TABLETS A DAY
     Dates: start: 20160809

REACTIONS (10)
  - Pain in extremity [Recovered/Resolved]
  - Blister [Recovered/Resolved]
  - Pruritus generalised [Recovered/Resolved]
  - Dysuria [Unknown]
  - Hypersensitivity [Unknown]
  - Urticaria [Unknown]
  - Neck pain [Recovered/Resolved]
  - Dermatitis bullous [Unknown]
  - Vaginal discharge [Unknown]
  - Vaginal infection [Unknown]

NARRATIVE: CASE EVENT DATE: 20160810
